FAERS Safety Report 8274099-9 (Version None)
Quarter: 2012Q2

REPORT INFORMATION
  Report Type: 
  Country: None (occurrence: None)
  Receive Date: 20120411
  Receipt Date: 20120405
  Transmission Date: 20120825
  Serious: Yes (Other)
  Sender: FDA-Public Use
  Company Number: GB-PFIZER INC-2012086022

PATIENT
  Age: 56 Year
  Sex: Female
  Weight: 58 kg

DRUGS (4)
  1. AMITRIPTYLINE [Concomitant]
     Dosage: UNK
  2. PAPAVERETUM [Concomitant]
     Dosage: UNK
  3. PREGABALIN [Suspect]
     Indication: NEURALGIA
     Dosage: 300 MG, 2X/DAY
     Route: 048
     Dates: start: 20110413, end: 20120310
  4. BUPRENORPHINE [Concomitant]
     Dosage: UNK

REACTIONS (1)
  - CIRCULATORY COLLAPSE [None]
